FAERS Safety Report 13874730 (Version 1)
Quarter: 2017Q3

REPORT INFORMATION
  Report Type: Spontaneous
  Country: US (occurrence: US)
  Receive Date: 20170816
  Receipt Date: 20170816
  Transmission Date: 20171127
  Serious: No
  Sender: FDA-Public Use
  Company Number: US-ROCHE-1356669

PATIENT
  Sex: Female

DRUGS (1)
  1. LUCENTIS [Suspect]
     Active Substance: RANIBIZUMAB
     Indication: RETINAL VEIN OCCLUSION
     Route: 050
     Dates: start: 20110714

REACTIONS (5)
  - Altered visual depth perception [Not Recovered/Not Resolved]
  - Visual acuity tests abnormal [Unknown]
  - Cataract [Not Recovered/Not Resolved]
  - Visual impairment [Unknown]
  - Visual impairment [Not Recovered/Not Resolved]
